FAERS Safety Report 9568986 (Version 1)
Quarter: 2013Q3

REPORT INFORMATION
  Report Type: Spontaneous
  Country: US (occurrence: US)
  Receive Date: 20130930
  Receipt Date: 20130930
  Transmission Date: 20140515
  Serious: No
  Sender: FDA-Public Use
  Company Number: US-AMGEN-USASP2013059966

PATIENT
  Age: 17 Year
  Sex: Male

DRUGS (1)
  1. ENBREL [Suspect]
     Indication: ANKYLOSING SPONDYLITIS
     Dosage: UNK UNK, QWK
     Route: 065
     Dates: start: 20121206, end: 2013

REACTIONS (3)
  - Fibromyalgia [Not Recovered/Not Resolved]
  - Pain [Not Recovered/Not Resolved]
  - Local swelling [Not Recovered/Not Resolved]
